FAERS Safety Report 12839294 (Version 1)
Quarter: 2016Q4

REPORT INFORMATION
  Report Type: Spontaneous
  Country: US (occurrence: US)
  Receive Date: 20161010
  Receipt Date: 20161010
  Transmission Date: 20170207
  Serious: Yes (Hospitalization, Disabling)
  Sender: FDA-Public Use
  Company Number: None

PATIENT
  Age: 30 Year
  Sex: Male
  Weight: 60.3 kg

DRUGS (2)
  1. RISPERDAL [Suspect]
     Active Substance: RISPERIDONE
     Indication: SCHIZOPHRENIA
  2. INVEGA [Suspect]
     Active Substance: PALIPERIDONE
     Indication: SCHIZOPHRENIA
     Dosage: ?          OTHER FREQUENCY:INJECTION;OTHER ROUTE:INJECTION?
     Dates: start: 20160614

REACTIONS (8)
  - Arrhythmia [None]
  - Renal pain [None]
  - Confusional state [None]
  - Dyspnoea [None]
  - Dizziness [None]
  - Altered state of consciousness [None]
  - Somnolence [None]
  - Tongue movement disturbance [None]

NARRATIVE: CASE EVENT DATE: 20160214
